FAERS Safety Report 4985121-7 (Version None)
Quarter: 2006Q1

REPORT INFORMATION
  Report Type: 
  Country: None (occurrence: None)
  Receive Date: 20060309
  Receipt Date: 20050908
  Transmission Date: 20060701
  Serious: Yes (Other)
  Sender: FDA-Public Use
  Company Number: 417411

PATIENT

DRUGS (3)
  1. ACCUTANE [Suspect]
     Indication: ACNE CYSTIC
     Dosage: 40 MG DAILY
     Dates: start: 19960610, end: 19990215
  2. LIQUID NITROGEN (LIQUID NITROGEN) [Concomitant]
  3. BACTROBAN (MUPIROCIN) [Concomitant]

REACTIONS (1)
  - PREGNANCY [None]
